FAERS Safety Report 7734905-0 (Version None)
Quarter: 2011Q3

REPORT INFORMATION
  Report Type: 
  Country: None (occurrence: None)
  Receive Date: 20110907
  Receipt Date: 20110824
  Transmission Date: 20111222
  Serious: Yes (Other)
  Sender: FDA-Public Use
  Company Number: IT-CUBIST-2011S1000558

PATIENT
  Age: 59 Year
  Sex: Female
  Weight: 160 kg

DRUGS (5)
  1. COLISTIN [Concomitant]
     Indication: PRODUCT USED FOR UNKNOWN INDICATION
  2. CUBICIN [Suspect]
     Indication: DEVICE RELATED INFECTION
     Dates: start: 20090529
  3. IMMUNOGLOBULINS [Concomitant]
     Indication: DERMATITIS EXFOLIATIVE
     Dates: start: 20090526, end: 20090530
  4. MEROPENEM [Concomitant]
     Indication: PRODUCT USED FOR UNKNOWN INDICATION
  5. CUBICIN [Suspect]
     Dates: start: 20090529

REACTIONS (3)
  - JUGULAR VEIN THROMBOSIS [None]
  - CHILLS [None]
  - PYREXIA [None]
